FAERS Safety Report 5097084-7 (Version None)
Quarter: 2006Q3

REPORT INFORMATION
  Report Type: 
  Country: None (occurrence: None)
  Receive Date: 20060906
  Receipt Date: 20060822
  Transmission Date: 20061208
  Serious: Yes (Hospitalization)
  Sender: FDA-Public Use
  Company Number: US-AMGEN-US191049

PATIENT
  Sex: Male

DRUGS (11)
  1. ENBREL [Suspect]
     Indication: PSORIASIS
     Route: 058
     Dates: start: 20050101
  2. ENBREL [Suspect]
     Indication: PSORIATIC ARTHROPATHY
  3. AMBIEN [Concomitant]
     Route: 048
  4. PHENERGAN HCL [Concomitant]
  5. VALIUM [Concomitant]
     Route: 048
  6. CYMBALTA [Concomitant]
     Route: 048
  7. SEROQUEL [Concomitant]
     Route: 048
  8. DOVONEX [Concomitant]
     Route: 061
  9. CLONIDINE [Concomitant]
  10. FLEXERIL [Concomitant]
  11. MOTRIN [Concomitant]
     Route: 048

REACTIONS (5)
  - CONDITION AGGRAVATED [None]
  - DEPRESSION [None]
  - PSORIASIS [None]
  - PSORIATIC ARTHROPATHY [None]
  - SUICIDAL IDEATION [None]
